FAERS Safety Report 12660585 (Version 2)
Quarter: 2016Q3

REPORT INFORMATION
  Report Type: Spontaneous
  Country: US (occurrence: US)
  Receive Date: 20160817
  Receipt Date: 20160901
  Transmission Date: 20161109
  Serious: No
  Sender: FDA-Public Use
  Company Number: US-RELYPSA-RLY2016000497

PATIENT
  Age: 60 Year
  Sex: Female

DRUGS (28)
  1. AMLODIPINE BESYLATE. [Concomitant]
     Active Substance: AMLODIPINE BESYLATE
  2. DIOVAN [Concomitant]
     Active Substance: VALSARTAN
  3. FLONASE                            /00908302/ [Concomitant]
     Active Substance: MOMETASONE FUROATE
  4. WARFARIN SODIUM. [Concomitant]
     Active Substance: WARFARIN SODIUM
  5. ZEMPLAR [Concomitant]
     Active Substance: PARICALCITOL
  6. MAGNESIUM [Concomitant]
     Active Substance: MAGNESIUM
  7. PROCRIT [Concomitant]
     Active Substance: ERYTHROPOIETIN
  8. CELLCEPT [Concomitant]
     Active Substance: MYCOPHENOLATE MOFETIL\MYCOPHENOLATE MOFETIL HYDROCHLORIDE
  9. COLCRYS [Concomitant]
     Active Substance: COLCHICINE
  10. COREG [Concomitant]
     Active Substance: CARVEDILOL
  11. FOLIC ACID. [Concomitant]
     Active Substance: FOLIC ACID
  12. SODIUM BICARBONATE. [Concomitant]
     Active Substance: SODIUM BICARBONATE
  13. VITAMIN D3 [Concomitant]
     Active Substance: CHOLECALCIFEROL
  14. DEXILANT [Concomitant]
     Active Substance: DEXLANSOPRAZOLE
  15. NEORAL [Concomitant]
     Active Substance: CYCLOSPORINE
  16. NIASPAN [Concomitant]
     Active Substance: NIACIN
  17. NOVOLOG [Concomitant]
     Active Substance: INSULIN ASPART
  18. PREDNISONE. [Concomitant]
     Active Substance: PREDNISONE
  19. VELTASSA [Suspect]
     Active Substance: PATIROMER
     Indication: HYPERKALAEMIA
     Dosage: 8.4 G, QD
     Route: 048
  20. PLAVIX [Concomitant]
     Active Substance: CLOPIDOGREL BISULFATE
  21. PRAVASTATIN SODIUM. [Concomitant]
     Active Substance: PRAVASTATIN SODIUM
  22. PROMETHAZINE - CODEINE             /01129901/ [Concomitant]
  23. ULORIC [Concomitant]
     Active Substance: FEBUXOSTAT
  24. SYMLINPEN [Concomitant]
     Active Substance: PRAMLINTIDE ACETATE
  25. ZITHROMAX [Concomitant]
     Active Substance: AZITHROMYCIN DIHYDRATE
  26. SODIUM POLYSTYRENE SULFONATE. [Concomitant]
     Active Substance: SODIUM POLYSTYRENE SULFONATE
  27. LOMOTIL [Concomitant]
     Active Substance: ATROPINE SULFATE\DIPHENOXYLATE HYDROCHLORIDE
  28. INSULIN GLARGINE [Concomitant]
     Active Substance: INSULIN GLARGINE
     Dosage: TOUJEO SOLOSTAR

REACTIONS (1)
  - Blood potassium increased [Unknown]

NARRATIVE: CASE EVENT DATE: 20160413
